FAERS Safety Report 4832427-8 (Version None)
Quarter: 2005Q4

REPORT INFORMATION
  Report Type: 
  Country: None (occurrence: None)
  Receive Date: 20051121
  Receipt Date: 20051115
  Transmission Date: 20060501
  Serious: Yes (Hospitalization)
  Sender: FDA-Public Use
  Company Number: US-BRISTOL-MYERS SQUIBB COMPANY-13181292

PATIENT
  Age: 71 Year
  Sex: Female
  Weight: 50 kg

DRUGS (6)
  1. PACLITAXEL [Suspect]
     Dosage: CYCLE 1: 07-OCT-2005
     Route: 042
     Dates: start: 20051028, end: 20051028
  2. ARANESP [Concomitant]
     Indication: ANAEMIA
     Route: 058
     Dates: start: 20050906
  3. SYNTHROID [Concomitant]
     Route: 048
     Dates: start: 20050511
  4. COUMADIN [Concomitant]
     Dates: start: 20050511
  5. FERROUS SULFATE TAB [Concomitant]
     Route: 048
     Dates: start: 20050609
  6. COLACE [Concomitant]
     Dates: start: 20050617

REACTIONS (2)
  - ABASIA [None]
  - VASCULITIS [None]
